FAERS Safety Report 23240339 (Version 2)
Quarter: 2024Q2

REPORT INFORMATION
  Report Type: Report from Study
  Country: US (occurrence: US)
  Receive Date: 20231129
  Receipt Date: 20240606
  Transmission Date: 20240716
  Serious: No
  Sender: FDA-Public Use
  Company Number: US-002147023-NVSC2023US253811

PATIENT
  Sex: Male

DRUGS (2)
  1. KESIMPTA [Suspect]
     Active Substance: OFATUMUMAB
     Indication: Relapsing multiple sclerosis
     Dosage: UNK
     Route: 058
     Dates: start: 20231118
  2. KESIMPTA [Suspect]
     Active Substance: OFATUMUMAB
     Dosage: LD 2
     Route: 065

REACTIONS (6)
  - Illness [Unknown]
  - Influenza like illness [Unknown]
  - Fatigue [Unknown]
  - Muscle twitching [Unknown]
  - Cough [Unknown]
  - Product supply issue [Unknown]
